FAERS Safety Report 20774808 (Version 1)
Quarter: 2022Q2

REPORT INFORMATION
  Report Type: Spontaneous
  Country: US (occurrence: US)
  Receive Date: 20220502
  Receipt Date: 20220502
  Transmission Date: 20220721
  Serious: No
  Sender: FDA-Public Use
  Company Number: US-DECIPHERA PHARMACEUTICALS LLC-2022US000354

PATIENT
  Sex: Female

DRUGS (1)
  1. QINLOCK [Suspect]
     Active Substance: RIPRETINIB
     Indication: Gastric cancer
     Dosage: 150 MILLIGRAM, QD
     Route: 048
     Dates: start: 202008

REACTIONS (3)
  - Adverse event [Unknown]
  - Underdose [Unknown]
  - Product use in unapproved indication [Unknown]
